FAERS Safety Report 4335822-9 (Version None)
Quarter: 2004Q2

REPORT INFORMATION
  Report Type: 
  Country: None (occurrence: None)
  Receive Date: 20040406
  Receipt Date: 20040326
  Transmission Date: 20050107
  Serious: Yes (Hospitalization)
  Sender: FDA-Public Use
  Company Number: US067479

PATIENT
  Age: 61 Year
  Sex: Female

DRUGS (12)
  1. ENBREL [Suspect]
     Indication: RHEUMATOID ARTHRITIS
     Dosage: 25 MG, 2 IN 1 WEEK, SC
     Route: 058
     Dates: start: 20020115, end: 20030615
  2. MELOXICAM [Concomitant]
  3. CALCIUM CARBONATE [Concomitant]
  4. OMEPRAZOLE [Concomitant]
  5. ZOLPIDEM [Concomitant]
  6. RAMIPRIL [Concomitant]
  7. BELLADONNA [Concomitant]
  8. LACIDIPINE [Concomitant]
  9. RISEDRONATE SODIUM [Concomitant]
  10. CACIT [Concomitant]
  11. PROGESTERONE [Concomitant]
  12. ESTRADIOL [Concomitant]

REACTIONS (9)
  - ALOPECIA [None]
  - BRONCHITIS [None]
  - CONJUNCTIVITIS [None]
  - HYPOGEUSIA [None]
  - HYPOSMIA [None]
  - OTITIS MEDIA [None]
  - RASH ERYTHEMATOUS [None]
  - SINUSITIS [None]
  - SYSTEMIC LUPUS ERYTHEMATOSUS [None]
